FAERS Safety Report 9510927 (Version 2)
Quarter: 2013Q3

REPORT INFORMATION
  Report Type: Report from Study
  Country: ZA (occurrence: ZA)
  Receive Date: 20130910
  Receipt Date: 20130910
  Transmission Date: 20140515
  Serious: Yes (Death)
  Sender: FDA-Public Use
  Company Number: ZA-ROCHE-1272084

PATIENT
  Age: 43 Year
  Sex: Male

DRUGS (2)
  1. MIRCERA [Suspect]
     Indication: NEPHROGENIC ANAEMIA
     Route: 058
     Dates: start: 20121121
  2. MIRCERA [Suspect]
     Route: 058
     Dates: start: 201307

REACTIONS (1)
  - Myocardial infarction [Fatal]
